FAERS Safety Report 19755299 (Version 1)
Quarter: 2021Q3

REPORT INFORMATION
  Report Type: Spontaneous
  Country: CN (occurrence: CN)
  Receive Date: 20210827
  Receipt Date: 20210827
  Transmission Date: 20211014
  Serious: Yes (Other)
  Sender: FDA-Public Use
  Company Number: CN-MYLANLABS-2021M1055275

PATIENT
  Age: 54 Year
  Sex: Male

DRUGS (1)
  1. AZELASTINE. [Suspect]
     Active Substance: AZELASTINE HYDROCHLORIDE
     Indication: NASAL CONGESTION
     Dosage: 0.14 MILLIGRAM, BID
     Route: 045
     Dates: start: 20200415, end: 20200425

REACTIONS (3)
  - Mucosal disorder [Recovering/Resolving]
  - Nasal discomfort [Recovered/Resolved]
  - Rhinalgia [Recovered/Resolved]

NARRATIVE: CASE EVENT DATE: 20200415
